FAERS Safety Report 5380378-5 (Version None)
Quarter: 2007Q3

REPORT INFORMATION
  Report Type: 
  Country: None (occurrence: None)
  Receive Date: 20070706
  Receipt Date: 20070629
  Transmission Date: 20080115
  Serious: No
  Sender: FDA-Public Use
  Company Number: A0652613A

PATIENT
  Age: 70 Year
  Sex: Female
  Weight: 63.6 kg

DRUGS (6)
  1. TYKERB [Suspect]
     Indication: BREAST CANCER
     Dosage: 5TAB PER DAY
     Route: 048
     Dates: start: 20070417
  2. LOTREL [Concomitant]
     Indication: HYPERTENSION
     Route: 048
     Dates: start: 20020101
  3. SYNTHROID [Concomitant]
     Indication: HYPOTHYROIDISM
     Dosage: 75MCG PER DAY
     Route: 048
     Dates: start: 20060201
  4. DILANTIN [Concomitant]
     Dosage: 200MG TWICE PER DAY
     Route: 048
     Dates: start: 20051001
  5. CLARINEX [Concomitant]
     Indication: SEASONAL ALLERGY
     Dosage: 5MG PER DAY
     Route: 048
     Dates: start: 20070401
  6. ZANTAC [Concomitant]
     Dosage: 150MG AS REQUIRED
     Route: 048

REACTIONS (1)
  - DIARRHOEA [None]
